FAERS Safety Report 16707663 (Version 1)
Quarter: 2019Q3

REPORT INFORMATION
  Report Type: Spontaneous
  Country: JP (occurrence: JP)
  Receive Date: 20190815
  Receipt Date: 20190815
  Transmission Date: 20191004
  Serious: Yes (Other)
  Sender: FDA-Public Use
  Company Number: JP-BAUSCH-BL-2019-022736

PATIENT
  Age: 72 Year
  Sex: Male
  Weight: 67.4 kg

DRUGS (6)
  1. PREDNISOLONE. [Suspect]
     Active Substance: PREDNISOLONE
     Dosage: 4 TIMES, EVERY 4 WEEKS, DAY 1-5, (TOTAL 6 TIMES).
     Route: 065
     Dates: end: 201802
  2. CYCLOPHOSPHAMIDE. [Suspect]
     Active Substance: CYCLOPHOSPHAMIDE
     Route: 065
     Dates: end: 201802
  3. PREDNISOLONE. [Suspect]
     Active Substance: PREDNISOLONE
     Indication: PERIPHERAL T-CELL LYMPHOMA UNSPECIFIED
     Dosage: 2 TIMES, EVERY 4 WEEKS, DAY 1-5
     Route: 065
     Dates: start: 201708
  4. PIRARUBICIN [Suspect]
     Active Substance: PIRARUBICIN
     Indication: PERIPHERAL T-CELL LYMPHOMA UNSPECIFIED
     Dosage: 2 TIMES, EVERY 4 WEEKS
     Route: 065
     Dates: start: 201708
  5. CYCLOPHOSPHAMIDE. [Suspect]
     Active Substance: CYCLOPHOSPHAMIDE
     Indication: PERIPHERAL T-CELL LYMPHOMA UNSPECIFIED
     Dosage: 2 TIMES, EVERY 4 WEEKS
     Route: 065
     Dates: start: 201708
  6. PIRARUBICIN [Suspect]
     Active Substance: PIRARUBICIN
     Route: 065
     Dates: end: 201802

REACTIONS (3)
  - Bone marrow failure [Unknown]
  - Nausea [Unknown]
  - Therapeutic product effect incomplete [Unknown]
